FAERS Safety Report 4673272-6 (Version None)
Quarter: 2005Q2

REPORT INFORMATION
  Report Type: 
  Country: None (occurrence: None)
  Receive Date: 20050525
  Receipt Date: 20050510
  Transmission Date: 20051028
  Serious: Yes (Hospitalization)
  Sender: FDA-Public Use
  Company Number: GBWYE653810MAY05

PATIENT
  Sex: Female
  Weight: 67 kg

DRUGS (5)
  1. ENBREL [Suspect]
     Indication: RHEUMATOID ARTHRITIS
     Route: 058
     Dates: start: 20040817
  2. CODEINE [Concomitant]
  3. NITRAZEPAM [Concomitant]
  4. ORAL CONTRACEPTIVE NOS [Concomitant]
  5. METHOTREXATE [Concomitant]

REACTIONS (3)
  - RASH [None]
  - SWOLLEN TONGUE [None]
  - SYNCOPE [None]
